FAERS Safety Report 9163546 (Version 1)
Quarter: 2013Q1

REPORT INFORMATION
  Report Type: Spontaneous
  Country: CA (occurrence: CA)
  Receive Date: 20130314
  Receipt Date: 20130314
  Transmission Date: 20140127
  Serious: Yes (Hospitalization, Other)
  Sender: FDA-Public Use
  Company Number: CA-AMGEN-CANSP2013014883

PATIENT
  Age: 89 Year
  Sex: Female
  Weight: 48.64 kg

DRUGS (1)
  1. PROLIA [Suspect]
     Indication: OSTEOPOROSIS POSTMENOPAUSAL
     Dosage: UNK
     Dates: start: 20110604

REACTIONS (3)
  - Dementia [Unknown]
  - Hand fracture [Recovering/Resolving]
  - Abnormal behaviour [Unknown]
